FAERS Safety Report 6877913-4 (Version None)
Quarter: 2010Q3

REPORT INFORMATION
  Report Type: 
  Country: None (occurrence: None)
  Receive Date: 20100727
  Receipt Date: 20100722
  Transmission Date: 20110219
  Serious: Yes (Disabling, Other)
  Sender: FDA-Public Use
  Company Number: US-MERCK-1002USA03609

PATIENT
  Age: 49 Year
  Sex: Female
  Weight: 80 kg

DRUGS (7)
  1. ZETIA [Suspect]
     Indication: BLOOD CHOLESTEROL INCREASED
     Route: 048
     Dates: start: 20031101, end: 20100201
  2. CRESTOR [Concomitant]
     Route: 048
  3. NEXIUM [Concomitant]
     Indication: GASTROOESOPHAGEAL REFLUX DISEASE
     Route: 065
  4. PREDNISONE [Concomitant]
     Indication: ADRENAL DISORDER
     Route: 065
  5. ATACAND [Concomitant]
     Route: 065
  6. VERELAN PM [Concomitant]
     Route: 065
  7. PEPCID [Concomitant]
     Route: 048

REACTIONS (20)
  - ABDOMINAL DISCOMFORT [None]
  - ABDOMINAL PAIN [None]
  - ARTHRALGIA [None]
  - ASTHENIA [None]
  - BONE DISORDER [None]
  - DIZZINESS [None]
  - FATIGUE [None]
  - FOOT DEFORMITY [None]
  - GASTROINTESTINAL MOTILITY DISORDER [None]
  - GASTROOESOPHAGEAL REFLUX DISEASE [None]
  - MENSTRUAL DISORDER [None]
  - MUSCULOSKELETAL PAIN [None]
  - MYALGIA [None]
  - NAUSEA [None]
  - NEURITIS [None]
  - PAIN IN EXTREMITY [None]
  - PATELLOFEMORAL PAIN SYNDROME [None]
  - TENDON DISORDER [None]
  - TENDON INJURY [None]
  - VOMITING [None]
